FAERS Safety Report 14593048 (Version 1)
Quarter: 2018Q1

REPORT INFORMATION
  Report Type: Spontaneous
  Country: US (occurrence: US)
  Receive Date: 20180302
  Receipt Date: 20180302
  Transmission Date: 20180509
  Serious: Yes (Other)
  Sender: FDA-Public Use
  Company Number: US-BAXTER-2018BAX006925

PATIENT
  Sex: Female

DRUGS (2)
  1. FLUCONAZOLE INJECTION, USP [Suspect]
     Active Substance: FLUCONAZOLE
     Indication: COCCIDIOIDOMYCOSIS
  2. FLUCONAZOLE INJECTION, USP [Suspect]
     Active Substance: FLUCONAZOLE
     Indication: CENTRAL NERVOUS SYSTEM FUNGAL INFECTION
     Route: 065

REACTIONS (1)
  - Treatment failure [Unknown]
